FAERS Safety Report 21942403 (Version 1)
Quarter: 2023Q1

REPORT INFORMATION
  Report Type: Report from Study
  Country: US (occurrence: US)
  Receive Date: 20230202
  Receipt Date: 20230202
  Transmission Date: 20230417
  Serious: No
  Sender: FDA-Public Use
  Company Number: US-EXELIXIS-CABO-22057768

PATIENT
  Age: 66 Year
  Sex: Female

DRUGS (1)
  1. CABOMETYX [Suspect]
     Active Substance: CABOZANTINIB S-MALATE
     Indication: Renal cancer
     Dosage: 40 MG, QD
     Route: 048
     Dates: start: 20220930

REACTIONS (10)
  - Eosinophil count increased [Unknown]
  - Sensitive skin [Unknown]
  - Bladder discomfort [Unknown]
  - Pruritus [Recovering/Resolving]
  - Constipation [Recovering/Resolving]
  - Neutrophil count decreased [Recovered/Resolved]
  - Hepatic enzyme increased [Recovering/Resolving]
  - White blood cell count decreased [Recovered/Resolved]
  - Cystitis escherichia [Recovering/Resolving]
  - Malignant neoplasm progression [Recovering/Resolving]

NARRATIVE: CASE EVENT DATE: 20221201
